FAERS Safety Report 20867162 (Version 1)
Quarter: 2022Q2

REPORT INFORMATION
  Report Type: Spontaneous
  Country: US (occurrence: None)
  Receive Date: 20220523
  Receipt Date: 20220523
  Transmission Date: 20220721
  Serious: No
  Sender: FDA-Public Use
  Company Number: None

PATIENT
  Age: 27 Year
  Sex: Female
  Weight: 94.5 kg

DRUGS (8)
  1. ZAFEMY [Suspect]
     Active Substance: ETHINYL ESTRADIOL\NORELGESTROMIN
     Indication: Polycystic ovaries
     Dosage: OTHER QUANTITY : 1 PATCH(ES);?OTHER FREQUENCY : 3 WKS ON 1 OFF;?
     Route: 061
     Dates: start: 20211001, end: 20220101
  2. TRAZODONE [Concomitant]
     Active Substance: TRAZODONE HYDROCHLORIDE
  3. ZOLOFT [Concomitant]
     Active Substance: SERTRALINE HYDROCHLORIDE
  4. BUSPAR [Concomitant]
     Active Substance: BUSPIRONE HYDROCHLORIDE
  5. Xulane/Zafemy [Concomitant]
  6. VITAMIN B COMPLEX [Concomitant]
     Active Substance: CYANOCOBALAMIN\DEXPANTHENOL\NIACINAMIDE\PYRIDOXINE HYDROCHLORIDE\RIBOFLAVIN 5^-PHOSPHATE SODIUM\THIA
  7. FISH OIL [Concomitant]
     Active Substance: FISH OIL
  8. BIOTIN [Concomitant]
     Active Substance: BIOTIN

REACTIONS (9)
  - Product substitution issue [None]
  - Product adhesion issue [None]
  - Mood swings [None]
  - Hormone level abnormal [None]
  - Crying [None]
  - Self-injurious ideation [None]
  - Acne [None]
  - Dysmenorrhoea [None]
  - Condition aggravated [None]
